FAERS Safety Report 4429292-X (Version None)
Quarter: 2004Q3

REPORT INFORMATION
  Report Type: 
  Country: None (occurrence: None)
  Receive Date: 20040818
  Receipt Date: 20040818
  Transmission Date: 20050211
  Serious: Yes (Hospitalization)
  Sender: FDA-Public Use
  Company Number: None

PATIENT
  Age: 72 Year
  Sex: Female
  Weight: 125 kg

DRUGS (4)
  1. LISINOPRIL [Suspect]
     Indication: CARDIAC FAILURE CONGESTIVE
  2. LISINOPRIL [Suspect]
     Indication: DIABETES MELLITUS
  3. LISINOPRIL [Suspect]
     Indication: HYPERTENSION
  4. POTASSIUM CHLORIDE [Suspect]
     Indication: MINERAL SUPPLEMENTATION

REACTIONS (6)
  - ABDOMINAL PAIN [None]
  - HAEMODIALYSIS [None]
  - HYPERKALAEMIA [None]
  - NAUSEA [None]
  - TREMOR [None]
  - VOMITING [None]
